FAERS Safety Report 7301394-X (Version None)
Quarter: 2011Q1

REPORT INFORMATION
  Report Type: 
  Country: None (occurrence: None)
  Receive Date: 20110218
  Receipt Date: 20110207
  Transmission Date: 20110831
  Serious: Yes (Other)
  Sender: FDA-Public Use
  Company Number: PHFR2011GB01256

PATIENT
  Sex: Male

DRUGS (9)
  1. TERAZOSIN [Concomitant]
     Dosage: 2 MG
     Route: 048
  2. CLONAZEPAM [Concomitant]
     Indication: ANXIETY
     Dosage: 0.5 MG
     Route: 048
  3. LANSOPRAZOLE [Concomitant]
     Indication: DYSPEPSIA
     Dosage: 30 MG
     Route: 048
  4. MULTI-VITAMINS [Concomitant]
     Route: 048
  5. RIVASTIGMINE [Concomitant]
  6. DULOXETINE [Concomitant]
     Indication: DEPRESSION
     Dosage: 90 MG
     Route: 048
  7. CLOZARIL [Suspect]
     Indication: SCHIZOPHRENIA
     Dosage: 300 MG
     Route: 048
  8. MADOPAR [Concomitant]
     Indication: PARKINSON'S DISEASE
     Dosage: 125X6
     Route: 048
  9. LORAZEPAM [Concomitant]
     Indication: ANXIETY
     Dosage: 0.5 MG
     Route: 048

REACTIONS (1)
  - PARKINSON'S DISEASE [None]
